FAERS Safety Report 16336834 (Version 2)
Quarter: 2020Q2

REPORT INFORMATION
  Report Type: Spontaneous
  Country: US (occurrence: US)
  Receive Date: 20190521
  Receipt Date: 20200407
  Transmission Date: 20200713
  Serious: Yes (Other)
  Sender: FDA-Public Use
  Company Number: US-ALNYLAM PHARMACEUTICALS, INC.-ALN-2019-000299

PATIENT
  Age: 74 Year
  Sex: Male

DRUGS (3)
  1. DIPHENHYDRAMINE. [Concomitant]
     Active Substance: DIPHENHYDRAMINE
     Indication: PROPHYLAXIS
     Dosage: 50 MILLIGRAM
  2. DIPHENHYDRAMINE. [Concomitant]
     Active Substance: DIPHENHYDRAMINE
     Dosage: 25 MILLIGRAM
  3. ONPATTRO [Suspect]
     Active Substance: PATISIRAN SODIUM
     Indication: HEREDITARY NEUROPATHIC AMYLOIDOSIS
     Route: 042

REACTIONS (9)
  - Cardiac failure [Unknown]
  - Hypotension [Unknown]
  - Infusion related reaction [Unknown]
  - Blood pressure decreased [Unknown]
  - Heart rate irregular [Unknown]
  - Constipation [Unknown]
  - Bradycardia [Unknown]
  - Nausea [Unknown]
  - Oedema due to cardiac disease [Unknown]

NARRATIVE: CASE EVENT DATE: 20190425
